FAERS Safety Report 6469106-X (Version None)
Quarter: 2009Q4

REPORT INFORMATION
  Report Type: 
  Country: None (occurrence: None)
  Receive Date: 20091203
  Receipt Date: 20080214
  Transmission Date: 20100525
  Serious: Yes (Hospitalization)
  Sender: FDA-Public Use
  Company Number: JP-ELI_LILLY_AND_COMPANY-JP200703001284

PATIENT
  Sex: Male
  Weight: 50 kg

DRUGS (19)
  1. PEMETREXED [Suspect]
     Indication: PLEURAL MESOTHELIOMA MALIGNANT
     Dosage: 735 MG, OTHER
     Route: 042
     Dates: start: 20070208, end: 20070208
  2. CISPLATIN [Suspect]
     Indication: PLEURAL MESOTHELIOMA MALIGNANT
     Dosage: 110 MG, OTHER
     Route: 042
     Dates: start: 20070208, end: 20070208
  3. PANVITAN [Concomitant]
     Indication: PROPHYLAXIS
     Dosage: 0.5 MG, DAILY (1/D)
     Route: 048
     Dates: start: 20070201, end: 20070315
  4. HYDROXOCOBALAMIN ACETATE [Concomitant]
     Indication: PROPHYLAXIS
     Dosage: 1 MG, DAILY (1/D)
     Route: 030
     Dates: start: 20070201, end: 20070201
  5. MORPHINE HYDROCHLORIDE [Concomitant]
     Indication: CANCER PAIN
     Dosage: 60 MG, DAILY (1/D)
     Route: 048
     Dates: start: 20070110
  6. MORPHINE HYDROCHLORIDE [Concomitant]
     Dosage: UNK, AS NEEDED
     Route: 048
     Dates: start: 20070108
  7. MORPHINE HYDROCHLORIDE [Concomitant]
     Dosage: 120 MG, DAILY (1/D)
     Route: 048
     Dates: start: 20070404
  8. DECADRON /NET/ [Concomitant]
     Indication: PROPHYLAXIS
     Dosage: 8 MG, DAILY (1/D)
     Route: 042
     Dates: start: 20070111
  9. DECADRON /NET/ [Concomitant]
     Dosage: 8 MG, DAILY (1/D)
     Route: 042
     Dates: start: 20070208, end: 20070208
  10. DECADRON /NET/ [Concomitant]
     Dosage: 8 MG, DAILY (1/D)
     Route: 042
     Dates: start: 20070211, end: 20070211
  11. DECADRON /NET/ [Concomitant]
     Dosage: 8 MG, DAILY (1/D)
     Route: 042
     Dates: start: 20070218, end: 20070218
  12. MUCOSTA [Concomitant]
     Indication: PROPHYLAXIS
     Dosage: 300 MG, DAILY (1/D)
     Route: 048
  13. RENIVACE [Concomitant]
     Indication: HYPERTENSION
     Dosage: 5 MG, DAILY (1/D)
     Route: 048
  14. AMLODIPINE [Concomitant]
     Indication: HYPERTENSION
     Dosage: 5 MG, DAILY (1/D)
     Route: 048
  15. PARIET [Concomitant]
     Indication: PROPHYLAXIS
     Dosage: 10 MG, DAILY (1/D)
     Route: 048
  16. TRYPTANOL [Concomitant]
     Indication: CANCER PAIN
     Dosage: 25 MG, DAILY (1/D)
     Route: 048
  17. LENDORMIN [Concomitant]
     Indication: INSOMNIA
     Dosage: 0.25 MG, DAILY (1/D)
     Route: 048
  18. LOXONIN [Concomitant]
     Indication: CANCER PAIN
     Dosage: UNK, UNKNOWN
     Route: 048
     Dates: end: 20070305
  19. DOGMATYL [Concomitant]
     Indication: PROPHYLAXIS
     Dosage: 150 MG, DAILY (1/D)
     Route: 048
     Dates: start: 20070219, end: 20070225

REACTIONS (1)
  - INTERSTITIAL LUNG DISEASE [None]
